FAERS Safety Report 15270185 (Version 2)
Quarter: 2018Q3

REPORT INFORMATION
  Report Type: Spontaneous
  Country: US (occurrence: US)
  Receive Date: 20180813
  Receipt Date: 20180928
  Transmission Date: 20181010
  Serious: No
  Sender: FDA-Public Use
  Company Number: US-PFIZER INC-2018321600

PATIENT
  Age: 28 Year
  Sex: Female

DRUGS (3)
  1. GENOTROPIN MQ [Suspect]
     Active Substance: SOMATROPIN
     Dosage: 0.6 MG, DAILY
     Dates: start: 2018
  2. GENOTROPIN MQ [Suspect]
     Active Substance: SOMATROPIN
     Dosage: 0.6 MG, DAILY
     Route: 058
     Dates: start: 20180509
  3. GENOTROPIN MQ [Suspect]
     Active Substance: SOMATROPIN
     Indication: GROWTH HORMONE DEFICIENCY
     Dosage: UNK
     Dates: end: 2016

REACTIONS (5)
  - Alopecia [Unknown]
  - Gastrointestinal disorder [Unknown]
  - Feeling cold [Unknown]
  - Weight increased [Unknown]
  - Blood thyroid stimulating hormone decreased [Unknown]
